FAERS Safety Report 7402275-3 (Version None)
Quarter: 2011Q2

REPORT INFORMATION
  Report Type: 
  Country: None (occurrence: None)
  Receive Date: 20110408
  Receipt Date: 20110405
  Transmission Date: 20111010
  Serious: Yes (Life-Threatening)
  Sender: FDA-Public Use
  Company Number: US-B.I. PHARMACEUTICALS,INC./RIDGEFIELD-2011-BP-01509BP

PATIENT
  Age: 68 Year
  Sex: Female
  Weight: 56.25 kg

DRUGS (10)
  1. PREMARIN [Concomitant]
  2. SPIRIVA [Suspect]
     Dosage: 18 MCG
     Route: 055
     Dates: start: 20101209, end: 20101209
  3. CELEBREX [Concomitant]
  4. TRAZODONE HCL [Concomitant]
  5. SIMVASTATIN [Concomitant]
  6. GABAPENTIN [Concomitant]
  7. EFFEXOR XR [Concomitant]
  8. METHADONE [Concomitant]
  9. DIGOXIN [Concomitant]
  10. HYOSCAMINE [Concomitant]

REACTIONS (3)
  - ANAPHYLACTIC REACTION [None]
  - PARAESTHESIA [None]
  - DYSPNOEA [None]
